FAERS Safety Report 6732933-5 (Version None)
Quarter: 2010Q2

REPORT INFORMATION
  Report Type: 
  Country: None (occurrence: None)
  Receive Date: 20100519
  Receipt Date: 20100317
  Transmission Date: 20101027
  Serious: Yes (Hospitalization)
  Sender: FDA-Public Use
  Company Number: FI-GENENTECH-271003

PATIENT
  Age: 30 Year
  Sex: Female

DRUGS (5)
  1. MABTHERA [Suspect]
     Indication: RHEUMATOID ARTHRITIS
     Dosage: 1000 MG/KG, Q2W
     Route: 042
     Dates: start: 20081016
  2. MABTHERA [Suspect]
     Dosage: 300 MG, UNK
     Route: 042
     Dates: start: 20081103, end: 20081103
  3. AZATHIOPRINE [Concomitant]
     Indication: RHEUMATOID ARTHRITIS
     Dosage: UNK
     Dates: end: 20081024
  4. MEDROL [Concomitant]
     Indication: RHEUMATOID ARTHRITIS
     Dosage: UNK
     Dates: end: 20081024
  5. HYDROXYCHLOROQUINE SULFATE [Concomitant]
     Indication: DRUG USE FOR UNKNOWN INDICATION

REACTIONS (4)
  - ANTIBODY TEST [None]
  - LEUKOPENIA [None]
  - SERUM SICKNESS-LIKE REACTION [None]
  - THROMBOCYTOPENIA [None]
